FAERS Safety Report 18741051 (Version 1)
Quarter: 2021Q1

REPORT INFORMATION
  Report Type: Spontaneous
  Country: US (occurrence: US)
  Receive Date: 20210114
  Receipt Date: 20210114
  Transmission Date: 20210419
  Serious: Yes (Hospitalization)
  Sender: FDA-Public Use
  Company Number: US-MYLANLABS-2021M1002172

PATIENT
  Age: 63 Year
  Sex: Male

DRUGS (3)
  1. SODIUM CHLORIDE. [Suspect]
     Active Substance: SODIUM CHLORIDE
     Indication: HYPONATRAEMIA
     Dosage: UNK
  2. DEXTROSE. [Concomitant]
     Active Substance: DEXTROSE
     Indication: RAPID CORRECTION OF HYPONATRAEMIA
     Dosage: 250 MILLILITER, QH
     Route: 065
  3. DESMOPRESSIN [Suspect]
     Active Substance: DESMOPRESSIN
     Indication: RAPID CORRECTION OF HYPONATRAEMIA
     Dosage: UNK
     Route: 065

REACTIONS (4)
  - Rapid correction of hyponatraemia [Recovered/Resolved]
  - Nephrogenic diabetes insipidus [Recovered/Resolved]
  - Drug ineffective [Unknown]
  - Polyuria [Recovered/Resolved]
